FAERS Safety Report 17485168 (Version 2)
Quarter: 2020Q1

REPORT INFORMATION
  Report Type: Spontaneous
  Country: US (occurrence: US)
  Receive Date: 20200302
  Receipt Date: 20200304
  Transmission Date: 20200409
  Serious: Yes (Other)
  Sender: FDA-Public Use
  Company Number: US-PFIZER INC-2020090750

PATIENT
  Age: 61 Year
  Sex: Female
  Weight: 97.98 kg

DRUGS (1)
  1. LYRICA [Suspect]
     Active Substance: PREGABALIN
     Indication: NEUROPATHY PERIPHERAL
     Dosage: UNK
     Dates: start: 2014, end: 201410

REACTIONS (6)
  - Ligament rupture [Unknown]
  - Weight increased [Unknown]
  - Lichen sclerosus [Unknown]
  - Multiple fractures [Unknown]
  - Product prescribing issue [Unknown]
  - Vulvovaginal pain [Recovered/Resolved with Sequelae]

NARRATIVE: CASE EVENT DATE: 201410
